FAERS Safety Report 14860768 (Version 5)
Quarter: 2020Q3

REPORT INFORMATION
  Report Type: Spontaneous
  Country: DK (occurrence: DK)
  Receive Date: 20180508
  Receipt Date: 20200701
  Transmission Date: 20201102
  Serious: Yes (Hospitalization, Other)
  Sender: FDA-Public Use
  Company Number: DK-GLAXOSMITHKLINE-DK2018075988

PATIENT
  Age: 23 Year
  Sex: Female
  Weight: 67 kg

DRUGS (14)
  1. GIONA EASYHALER [Suspect]
     Active Substance: BUDESONIDE
     Indication: ASTHMA
     Dosage: UNK, 200 MICROGRAMS / DOSE. DOSAGE: 1 SUCTION MORNING AND 2 SUCTION EVENING.
     Route: 055
     Dates: start: 201610
  2. IOPAMIDOL [Suspect]
     Active Substance: IOPAMIDOL
     Indication: PRODUCT USED FOR UNKNOWN INDICATION
     Dosage: UNK
     Route: 065
  3. DESLORATADINE. [Concomitant]
     Active Substance: DESLORATADINE
     Indication: SEASONAL ALLERGY
     Dosage: UNK, STRENGTH: 5 MG.
     Route: 048
     Dates: start: 20170111
  4. ELOCON [Suspect]
     Active Substance: MOMETASONE FUROATE
     Indication: ECZEMA
     Dosage: 0.1 %, PRN
     Route: 003
     Dates: start: 2013
  5. MICROGYN [Concomitant]
     Active Substance: ETHINYL ESTRADIOL\LEVONORGESTREL
     Indication: CONTRACEPTION
     Dosage: 1 DF, QD, STRENGTH: 0.15 + 0.03 MG.
     Route: 048
     Dates: start: 20170829, end: 201804
  6. FEXOFENADINE [Concomitant]
     Active Substance: FEXOFENADINE HYDROCHLORIDE
     Indication: SEASONAL ALLERGY
     Dosage: 120 MG, QD, STRENGTH: 120 MG
     Route: 048
     Dates: start: 20160425
  7. AVAMYS [Suspect]
     Active Substance: FLUTICASONE FUROATE
     Indication: RHINORRHOEA
     Dosage: 27.5 ?G, QD, STRENGTH: 27.5 MICROGRAMS.
     Route: 045
     Dates: start: 20170111
  8. ROXITHROMYCIN [Concomitant]
     Active Substance: ROXITHROMYCIN
     Indication: OTITIS MEDIA
     Dosage: 300 MG, QD, STRENGTH: 300 MG
     Route: 048
     Dates: start: 20171228, end: 20180226
  9. OPATANOL [Concomitant]
     Active Substance: OLOPATADINE
     Indication: EYE INFECTION
     Dosage: 2 GTT, QD, STRENGTH: 1 MG / ML. DOSAGE: IN BOTH EYES
     Route: 050
     Dates: start: 20170111
  10. BUFOMIX EASYHALER [Suspect]
     Active Substance: BUDESONIDE\FORMOTEROL FUMARATE
     Indication: ASTHMA
     Dosage: 2 DF, QD, STRENGTH: 9 + 320 MICROGRAMS / DOSE
     Route: 055
     Dates: start: 20161014
  11. MONTELUKAST [Concomitant]
     Active Substance: MONTELUKAST SODIUM
     Indication: ASTHMA
     Dosage: 10 MG, QD
     Route: 048
     Dates: start: 20170111, end: 201711
  12. FLUTICASONE. [Concomitant]
     Active Substance: FLUTICASONE
     Indication: RHINORRHOEA
     Dosage: 1 DF, QD, STRENGTH: 27.5 MICROGRAMS
     Route: 045
     Dates: start: 20170111
  13. BUVENTOL EASYHALER [Concomitant]
     Active Substance: ALBUTEROL SULFATE
     Indication: ASTHMA
     Dosage: 200 ?G, PRN, STRENGTH: 200 MICROGRAMS / DOSE. ; AS NECESSARY
     Route: 055
     Dates: start: 20161014
  14. MILDISON LIPID [Concomitant]
     Indication: RASH
     Dosage: 1 DF, BID, DOSAGE: 1 APPLICATION TWICE DAILY. STRENGTH: 10 MG / G.
     Route: 003
     Dates: start: 20141006

REACTIONS (16)
  - Depressed level of consciousness [Unknown]
  - Pruritus [Unknown]
  - Body temperature fluctuation [Unknown]
  - Blood pressure abnormal [Unknown]
  - Loss of personal independence in daily activities [Unknown]
  - Affective disorder [Unknown]
  - Immune system disorder [Unknown]
  - Abdominal pain [Unknown]
  - Fatigue [Recovering/Resolving]
  - Nausea [Unknown]
  - Dyspnoea [Recovering/Resolving]
  - Blood glucose abnormal [Unknown]
  - Arthralgia [Unknown]
  - Dizziness [Unknown]
  - Adrenal insufficiency [Recovering/Resolving]
  - Muscular weakness [Unknown]

NARRATIVE: CASE EVENT DATE: 2017
